FAERS Safety Report 10247388 (Version 1)
Quarter: 2014Q2

REPORT INFORMATION
  Report Type: Spontaneous
  Country: US (occurrence: US)
  Receive Date: 20140619
  Receipt Date: 20140619
  Transmission Date: 20141212
  Serious: No
  Sender: FDA-Public Use
  Company Number: US-PFIZER INC-2014164330

PATIENT
  Age: 83 Year
  Sex: Female
  Weight: 65.8 kg

DRUGS (7)
  1. AROMASIN [Suspect]
     Indication: BREAST CANCER
     Dosage: 25 MG, 1X/DAY IN THE NIGHT
     Route: 048
     Dates: start: 201405
  2. LISINOPRIL [Concomitant]
     Dosage: 20 MG, UNK
  3. DULOXETINE [Concomitant]
     Dosage: 60 MG, UNK
  4. SOTALOL [Concomitant]
     Dosage: 80 MG, 1X/DAY
  5. TERAZOSIN [Concomitant]
     Dosage: 5 MG, UNK
  6. GLIMEPIRIDE [Concomitant]
     Dosage: UNK
  7. METFORMIN [Concomitant]
     Dosage: UNK

REACTIONS (4)
  - Gastrooesophageal reflux disease [Unknown]
  - Feeling abnormal [Unknown]
  - Fatigue [Unknown]
  - Abdominal discomfort [Unknown]
